FAERS Safety Report 16965540 (Version 2)
Quarter: 2020Q1

REPORT INFORMATION
  Report Type: Report from Study
  Country: US (occurrence: US)
  Receive Date: 20191028
  Receipt Date: 20200227
  Transmission Date: 20200409
  Serious: Yes (Other)
  Sender: FDA-Public Use
  Company Number: NVSC2019US015654

PATIENT
  Sex: Female

DRUGS (1)
  1. GILENYA [Suspect]
     Active Substance: FINGOLIMOD HYDROCHLORIDE
     Indication: MULTIPLE SCLEROSIS
     Dosage: 0.5 MG, QD
     Route: 048

REACTIONS (9)
  - Stress [Unknown]
  - Muscle strain [Unknown]
  - Paraesthesia [Unknown]
  - Optic neuritis [Unknown]
  - Epistaxis [Unknown]
  - Multiple sclerosis relapse [Unknown]
  - Irritability [Unknown]
  - Fatigue [Unknown]
  - Migraine [Unknown]

NARRATIVE: CASE EVENT DATE: 2018
